FAERS Safety Report 18898208 (Version 2)
Quarter: 2021Q1

REPORT INFORMATION
  Report Type: Spontaneous
  Country: FR (occurrence: FR)
  Receive Date: 20210216
  Receipt Date: 20210331
  Transmission Date: 20210420
  Serious: Yes (Other)
  Sender: FDA-Public Use
  Company Number: FR-SA-2021SA051454

PATIENT
  Age: 40 Year
  Sex: Male

DRUGS (5)
  1. SOLUPRED [PREDNISOLONE METASULFOBENZOATE SODIUM] [Suspect]
     Active Substance: PREDNISOLONE SODIUM METAZOATE
     Indication: ASTHMA
     Dosage: 40 MG
  2. DUPIXENT [Suspect]
     Active Substance: DUPILUMAB
     Indication: ASTHMA
     Dosage: 600 MG, 1X
     Dates: start: 202012, end: 202012
  3. DUPIXENT [Suspect]
     Active Substance: DUPILUMAB
     Dosage: 300 MG
     Dates: start: 202101
  4. DUPIXENT [Suspect]
     Active Substance: DUPILUMAB
     Dosage: 200 MG
  5. SOLUPRED [PREDNISOLONE METASULFOBENZOATE SODIUM] [Suspect]
     Active Substance: PREDNISOLONE SODIUM METAZOATE
     Dosage: 80 MG

REACTIONS (11)
  - Dizziness [Recovered/Resolved]
  - Malaise [Unknown]
  - Rash [Recovered/Resolved]
  - Dyspnoea [Recovering/Resolving]
  - Deafness unilateral [Unknown]
  - Acne [Unknown]
  - Nervousness [Unknown]
  - Neck pain [Recovered/Resolved]
  - Muscle contracture [Recovered/Resolved]
  - Tinnitus [Recovered/Resolved]
  - Insomnia [Unknown]

NARRATIVE: CASE EVENT DATE: 202012
